FAERS Safety Report 4687269-3 (Version None)
Quarter: 2005Q2

REPORT INFORMATION
  Report Type: 
  Country: None (occurrence: None)
  Receive Date: 20050608
  Receipt Date: 20050526
  Transmission Date: 20051028
  Serious: Yes (Other)
  Sender: FDA-Public Use
  Company Number: 2005081569

PATIENT
  Sex: Female

DRUGS (3)
  1. DETROL LA [Suspect]
     Indication: ILL-DEFINED DISORDER
     Dosage: ORAL
     Route: 048
     Dates: start: 20041201
  2. NITROFURANTOIN [Suspect]
     Indication: ILL-DEFINED DISORDER
  3. VITAMIN B1 TAB [Suspect]
     Indication: ILL-DEFINED DISORDER

REACTIONS (5)
  - DRY MOUTH [None]
  - DYSURIA [None]
  - HEADACHE [None]
  - POST PROCEDURAL COMPLICATION [None]
  - SLEEP DISORDER [None]
